FAERS Safety Report 23570432 (Version 11)
Quarter: 2025Q4

REPORT INFORMATION
  Report Type: Report from Study
  Country: AR (occurrence: AR)
  Receive Date: 20240227
  Receipt Date: 20251014
  Transmission Date: 20260118
  Serious: Yes (Hospitalization, Other)
  Sender: NOVARTIS
  Company Number: AR-002147023-NVSC2021AR106876

PATIENT
  Age: 13 Year
  Sex: Male

DRUGS (6)
  1. ILARIS [Suspect]
     Active Substance: CANAKINUMAB
     Indication: Still^s disease
     Dosage: 150 MG, QMO
     Route: 058
     Dates: start: 20130101
  2. ILARIS [Suspect]
     Active Substance: CANAKINUMAB
     Dosage: UNK
     Route: 065
     Dates: start: 201908
  3. ILARIS [Suspect]
     Active Substance: CANAKINUMAB
     Dosage: 150 MG, QMO
     Route: 058
     Dates: start: 20240721
  4. METHOTREXATE (METHOTREXATE SODIUM) [Concomitant]
     Active Substance: METHOTREXATE SODIUM
     Indication: Product used for unknown indication
     Dosage: 7.5 MG, QW
     Route: 065
  5. TOBRADEX [Concomitant]
     Active Substance: DEXAMETHASONE\TOBRAMYCIN
     Indication: Product used for unknown indication
     Dosage: UNK
     Route: 047
  6. Todex [Concomitant]
     Indication: Product used for unknown indication
     Dosage: UNK
     Route: 047

REACTIONS (17)
  - Pyrexia [Unknown]
  - Arthralgia [Not Recovered/Not Resolved]
  - Still^s disease [Recovered/Resolved]
  - Still^s disease [Unknown]
  - Gait disturbance [Unknown]
  - Arthritis [Unknown]
  - Liver disorder [Unknown]
  - Motor dysfunction [Unknown]
  - Dysstasia [Unknown]
  - Bone pain [Unknown]
  - Product availability issue [Unknown]
  - Joint swelling [Unknown]
  - Pain [Unknown]
  - Scoliosis [Unknown]
  - Asthenia [Unknown]
  - Hepatic steatosis [Unknown]
  - Mobility decreased [Unknown]

NARRATIVE: CASE EVENT DATE: 20190701
